FAERS Safety Report 5886579-1 (Version None)
Quarter: 2008Q3

REPORT INFORMATION
  Report Type: 
  Country: None (occurrence: None)
  Receive Date: 20080917
  Receipt Date: 20080911
  Transmission Date: 20090109
  Serious: Yes (Death)
  Sender: FDA-Public Use
  Company Number: GB-TEVA-177354ISR

PATIENT
  Age: 39 Year
  Sex: Female

DRUGS (2)
  1. FLUOXETINE [Suspect]
     Dates: start: 20070601
  2. AMISULPRIDE [Suspect]
     Dates: start: 20070501, end: 20070601

REACTIONS (2)
  - DEATH [None]
  - DRUG INTERACTION [None]
